FAERS Safety Report 5127136-4 (Version None)
Quarter: 2006Q4

REPORT INFORMATION
  Report Type: 
  Country: None (occurrence: None)
  Receive Date: 20061013
  Receipt Date: 20060905
  Transmission Date: 20070319
  Serious: Yes (Other)
  Sender: FDA-Public Use
  Company Number: 2006AP04141

PATIENT
  Age: 53 Year
  Sex: Male

DRUGS (12)
  1. MEROPEN [Suspect]
     Indication: LUNG ABSCESS
     Route: 041
     Dates: start: 20060626, end: 20060628
  2. MEROPEN [Suspect]
     Route: 041
     Dates: start: 20060628, end: 20060706
  3. CLINDAMYCIN PHOSPHATE [Concomitant]
     Indication: LUNG ABSCESS
     Route: 042
     Dates: start: 20060628, end: 20060629
  4. VANCOMYCIN HYDROCHLORIDE [Concomitant]
     Indication: LUNG ABSCESS
     Route: 042
     Dates: start: 20060707, end: 20060718
  5. SOLU-MEDROL [Concomitant]
     Indication: LUNG ABSCESS
     Route: 042
     Dates: start: 20060707, end: 20060712
  6. NICORANDIL [Concomitant]
     Indication: CEREBRAL INFARCTION
     Route: 048
     Dates: end: 20060704
  7. SYMMETREL [Concomitant]
     Indication: CEREBRAL INFARCTION
     Route: 048
     Dates: end: 20060704
  8. ACINON 75 [Concomitant]
     Indication: GASTRITIS
     Route: 048
     Dates: end: 20060704
  9. ALOSENN [Concomitant]
     Indication: CONSTIPATION
     Route: 048
     Dates: end: 20060704
  10. PARAMIDIN [Concomitant]
     Indication: CEREBRAL INFARCTION
     Route: 048
     Dates: end: 20060704
  11. WARFARIN SODIUM [Concomitant]
     Indication: CEREBRAL INFARCTION
     Route: 048
     Dates: end: 20060629
  12. PANALDINE [Concomitant]
     Indication: CEREBRAL INFARCTION
     Route: 048
     Dates: end: 20060629

REACTIONS (2)
  - COAGULOPATHY [None]
  - STAPHYLOCOCCAL INFECTION [None]
